FAERS Safety Report 9784457 (Version 2)
Quarter: 2014Q2

REPORT INFORMATION
  Report Type: Spontaneous
  Country: US (occurrence: US)
  Receive Date: 20131226
  Receipt Date: 20140514
  Transmission Date: 20141212
  Serious: Yes (Hospitalization)
  Sender: FDA-Public Use
  Company Number: US-B.I. PHARMACEUTICALS,INC./RIDGEFIELD-2013-BI-43182BP

PATIENT
  Sex: Female
  Weight: 58 kg

DRUGS (9)
  1. SPIRIVA [Suspect]
     Indication: CHRONIC OBSTRUCTIVE PULMONARY DISEASE
     Dosage: 18 MCG
     Route: 055
     Dates: start: 2008
  2. SPIRIVA [Suspect]
     Dosage: 18 MCG
     Route: 055
     Dates: start: 2013
  3. TRIAM/HCTZ [Concomitant]
     Indication: HYPERTENSION
     Dosage: STRENGTH AND DAILY DOSE: 37.5/25MG;
     Route: 048
  4. DALIRESP [Concomitant]
     Indication: CHRONIC OBSTRUCTIVE PULMONARY DISEASE
     Dosage: 500 MG
     Route: 048
  5. PERCOCET [Concomitant]
     Indication: BACK PAIN
     Route: 065
  6. ASPIRIN [Concomitant]
     Dosage: 325 MG
     Route: 048
  7. LEVOTHYROXINE [Concomitant]
     Indication: HYPOTHYROIDISM
     Dosage: 75 MCG
     Route: 048
  8. OMEPRAZOLE [Concomitant]
     Indication: GASTROOESOPHAGEAL REFLUX DISEASE
     Dosage: 20 MG
     Route: 048
  9. VERAPAMIL [Concomitant]
     Indication: HYPERTENSION
     Dosage: 120 MG
     Route: 048

REACTIONS (5)
  - Constipation [Recovered/Resolved]
  - Chronic obstructive pulmonary disease [Not Recovered/Not Resolved]
  - Fall [Recovered/Resolved]
  - Back injury [Recovered/Resolved]
  - Product quality issue [Recovered/Resolved]
